FAERS Safety Report 13709957 (Version 3)
Quarter: 2017Q3

REPORT INFORMATION
  Report Type: Spontaneous
  Country: RU (occurrence: RU)
  Receive Date: 20170703
  Receipt Date: 20170816
  Transmission Date: 20171127
  Serious: Yes (Life-Threatening)
  Sender: FDA-Public Use
  Company Number: RU-ROCHE-1957275

PATIENT
  Age: 59 Year
  Sex: Female
  Weight: 92 kg

DRUGS (7)
  1. PERJETA [Suspect]
     Active Substance: PERTUZUMAB
     Indication: HER-2 POSITIVE BREAST CANCER
     Dosage: 1 COURSE OF PERJETA + HERCEPTIN AS LOADING DOSE
     Route: 042
     Dates: start: 2016, end: 2016
  2. CARBOPLATIN. [Suspect]
     Active Substance: CARBOPLATIN
     Indication: HER-2 POSITIVE BREAST CANCER
     Dosage: (AUC 6)
     Route: 065
  3. PERJETA [Suspect]
     Active Substance: PERTUZUMAB
     Dosage: 4 COURCES OF PERJETA + HERCEPTIN
     Route: 042
     Dates: start: 2016
  4. HERCEPTIN [Suspect]
     Active Substance: TRASTUZUMAB
     Indication: HER-2 POSITIVE BREAST CANCER
     Dosage: 1 COURSE OF PERJETA + HERCEPTIN AS LOADING DOSE
     Route: 042
     Dates: start: 2016, end: 2016
  5. HERCEPTIN [Suspect]
     Active Substance: TRASTUZUMAB
     Dosage: 4 COURSES OF PERJETA + HERCEPTIN
     Route: 042
     Dates: start: 2016
  6. HERCEPTIN [Suspect]
     Active Substance: TRASTUZUMAB
     Dosage: 1 COURSE
     Route: 042
     Dates: start: 2016
  7. DOCETAXEL. [Suspect]
     Active Substance: DOCETAXEL
     Indication: HER-2 POSITIVE BREAST CANCER
     Dosage: (=150 MG)
     Route: 065

REACTIONS (1)
  - Acute respiratory distress syndrome [Recovered/Resolved]

NARRATIVE: CASE EVENT DATE: 2016
